FAERS Safety Report 23670939 (Version 1)
Quarter: 2024Q1

REPORT INFORMATION
  Report Type: Spontaneous
  Country: CA (occurrence: CA)
  Receive Date: 20240326
  Receipt Date: 20240326
  Transmission Date: 20240409
  Serious: Yes (Hospitalization)
  Sender: FDA-Public Use
  Company Number: CA-JNJFOC-20240354419

PATIENT
  Age: 63 Year
  Sex: Male
  Weight: 95 kg

DRUGS (16)
  1. INVOKANA [Suspect]
     Active Substance: CANAGLIFLOZIN
     Indication: Type 2 diabetes mellitus
     Route: 048
  2. ACETAMINOPHEN [Concomitant]
     Active Substance: ACETAMINOPHEN
  3. AMLODIPINE [Concomitant]
     Active Substance: AMLODIPINE BESYLATE
     Route: 065
  4. ATENOLOL [Concomitant]
     Active Substance: ATENOLOL
  5. ATORVASTATIN [Concomitant]
     Active Substance: ATORVASTATIN
  6. BEVACIZUMAB [Concomitant]
     Active Substance: BEVACIZUMAB
     Route: 042
  7. DICLOFENAC [Concomitant]
     Active Substance: DICLOFENAC
  8. DULOXETINE HYDROCHLORIDE [Concomitant]
     Active Substance: DULOXETINE HYDROCHLORIDE
     Route: 048
  9. GABAPENTIN [Concomitant]
     Active Substance: GABAPENTIN
  10. HYDROCHLOROTHIAZIDE [Concomitant]
     Active Substance: HYDROCHLOROTHIAZIDE
  11. NABILONE [Concomitant]
     Active Substance: NABILONE
  12. SODIUM BICARBONATE [Concomitant]
     Active Substance: SODIUM BICARBONATE
  13. TRANDOLAPRIL [Concomitant]
     Active Substance: TRANDOLAPRIL
  14. VITAMIN B12 [Concomitant]
     Active Substance: CYANOCOBALAMIN
  15. ERGOCALCIFEROL [Concomitant]
     Active Substance: ERGOCALCIFEROL
  16. METFORMIN\SITAGLIPTIN [Concomitant]
     Active Substance: METFORMIN\SITAGLIPTIN

REACTIONS (3)
  - Fournier^s gangrene [Recovering/Resolving]
  - Acute kidney injury [Recovering/Resolving]
  - Gram stain positive [Recovering/Resolving]
